FAERS Safety Report 5828678-6 (Version None)
Quarter: 2008Q3

REPORT INFORMATION
  Report Type: 
  Country: None (occurrence: None)
  Receive Date: 20080731
  Receipt Date: 20080724
  Transmission Date: 20090109
  Serious: Yes (Death)
  Sender: FDA-Public Use
  Company Number: CA-WATSON-2008-04522

PATIENT
  Age: 3 Year
  Sex: Male
  Weight: 16.7 kg

DRUGS (6)
  1. DEXAMETHASONE SODIUM PHOSPHATE [Suspect]
     Indication: PROPHYLAXIS OF NAUSEA AND VOMITING
     Dosage: 0.25 MG/KG, SINGLE
     Route: 042
     Dates: start: 20071217, end: 20071217
  2. OMEPRAZOLE [Concomitant]
     Indication: GASTROOESOPHAGEAL REFLUX DISEASE
     Dosage: UNK
     Route: 065
  3. SEVOFLURANE [Concomitant]
     Indication: DRUG USE FOR UNKNOWN INDICATION
     Dosage: INSPIRED CONCENTRATION 4%
     Route: 055
     Dates: start: 20071217, end: 20071217
  4. PROPOFOL [Concomitant]
     Indication: DRUG USE FOR UNKNOWN INDICATION
     Dosage: 3.5 MG/KG, SINGLE
     Route: 042
     Dates: start: 20071217, end: 20071217
  5. PARACETAMOL [Concomitant]
     Indication: ANALGESIA
     Dosage: 650 MG, SINGLE
     Route: 054
     Dates: start: 20071217, end: 20071217
  6. ONDANSETRON [Concomitant]
     Indication: PROPHYLAXIS OF NAUSEA AND VOMITING
     Dosage: 0.1 MG/KG, SINGLE
     Route: 042
     Dates: start: 20071217, end: 20071217

REACTIONS (1)
  - TUMOUR LYSIS SYNDROME [None]
